FAERS Safety Report 4596740-4 (Version None)
Quarter: 2005Q1

REPORT INFORMATION
  Report Type: 
  Country: None (occurrence: None)
  Receive Date: 20050302
  Receipt Date: 20050224
  Transmission Date: 20050727
  Serious: Yes (Other)
  Sender: FDA-Public Use
  Company Number: JP-GLAXOSMITHKLINE-B0373039A

PATIENT
  Age: 66 Year
  Sex: Male

DRUGS (3)
  1. PAXIL [Suspect]
     Indication: DEPRESSION
     Route: 048
     Dates: start: 20050201
  2. DEPAKENE [Concomitant]
     Route: 048
     Dates: start: 20050220
  3. ROHYPNOL [Concomitant]
     Route: 048
     Dates: start: 20050201

REACTIONS (1)
  - MANIA [None]
